FAERS Safety Report 23992074 (Version 2)
Quarter: 2024Q2

REPORT INFORMATION
  Report Type: Spontaneous
  Country: US (occurrence: US)
  Receive Date: 20240620
  Receipt Date: 20240620
  Transmission Date: 20240716
  Serious: Yes (Hospitalization)
  Sender: FDA-Public Use
  Company Number: US-ROCHE-10000000261

PATIENT
  Age: 41 Year
  Sex: Female

DRUGS (1)
  1. OCREVUS [Suspect]
     Active Substance: OCRELIZUMAB
     Indication: Relapsing multiple sclerosis
     Dosage: LAST OCREVUS INFUSION ON 08/FEB/2024
     Route: 065

REACTIONS (8)
  - Cough [Unknown]
  - Ear infection [Unknown]
  - COVID-19 [Recovering/Resolving]
  - Pneumonia staphylococcal [Recovering/Resolving]
  - Septic shock [Recovering/Resolving]
  - Pulmonary haemorrhage [Recovering/Resolving]
  - Cardiogenic shock [Recovering/Resolving]
  - Cardiac arrest [Recovering/Resolving]
